FAERS Safety Report 11474939 (Version 1)
Quarter: 2015Q3

REPORT INFORMATION
  Report Type: Report from Study
  Country: CZ (occurrence: CZ)
  Receive Date: 20150908
  Receipt Date: 20150908
  Transmission Date: 20151125
  Serious: Yes (Hospitalization)
  Sender: FDA-Public Use
  Company Number: CZ-BAXTER-2015BAX048480

PATIENT
  Age: 51 Year
  Sex: Female
  Weight: 83 kg

DRUGS (14)
  1. ABT-888 (VELIPARIB) [Suspect]
     Active Substance: VELIPARIB
     Indication: TRIPLE NEGATIVE BREAST CANCER
     Dosage: CHEMOTHERAPY SEGMENT 1
     Route: 048
     Dates: start: 20150421, end: 20150712
  2. ZOFRAN [Concomitant]
     Active Substance: ONDANSETRON HYDROCHLORIDE
     Indication: PREMEDICATION
     Route: 042
     Dates: start: 20150427
  3. CARBOPLATIN. [Suspect]
     Active Substance: CARBOPLATIN
     Indication: TRIPLE NEGATIVE BREAST CANCER
     Dosage: DAY 1 OF FOUR 21-DAY CYCLES DURING CHEMOTHERAPY SEGMENT 1
     Route: 042
     Dates: start: 20150421, end: 20150622
  4. PACLITAXEL. [Suspect]
     Active Substance: PACLITAXEL
     Indication: TRIPLE NEGATIVE BREAST CANCER
     Dosage: DAY 1 OF 12 WEEKLY CYCLES DURING CHEMOTHERAPY SEGMENT 1
     Route: 042
     Dates: start: 20150421, end: 20150707
  5. DOXORUBICIN [Suspect]
     Active Substance: DOXORUBICIN
     Indication: TRIPLE NEGATIVE BREAST CANCER
     Dosage: DAY 1 OF FOUR 14-DAY CYCLES DURING CHEMOTHERAPY SEGMENT 2
     Route: 042
     Dates: start: 20150713
  6. ALOXI [Concomitant]
     Active Substance: PALONOSETRON HYDROCHLORIDE
     Indication: PREMEDICATION
     Route: 048
     Dates: start: 20150421
  7. DITHIADEN [Concomitant]
     Active Substance: BISULEPIN
     Indication: PREMEDICATION
     Route: 040
     Dates: start: 20150421
  8. DEXAMED [Concomitant]
     Indication: PREMEDICATION
     Route: 042
     Dates: start: 20150421
  9. ZOLPINOX [Concomitant]
     Indication: PROPHYLAXIS OF NAUSEA AND VOMITING
     Route: 048
     Dates: start: 20150525
  10. FORTECORTIN [Concomitant]
     Active Substance: DEXAMETHASONE
     Indication: PREMEDICATION
     Route: 048
     Dates: start: 20150421
  11. RANITIDINE [Concomitant]
     Active Substance: RANITIDINE\RANITIDINE HYDROCHLORIDE
     Indication: PREMEDICATION
     Route: 042
     Dates: start: 20150421
  12. ENDOXAN 1G [Suspect]
     Active Substance: CYCLOPHOSPHAMIDE
     Indication: TRIPLE NEGATIVE BREAST CANCER
     Dosage: DAY 1 OF FOUR 14-DAY CYCLES DURING CHEMOTHERAPY SEGMENT 2
     Route: 042
     Dates: start: 20150713
  13. ZULBEX [Concomitant]
     Indication: GASTROOESOPHAGEAL REFLUX PROPHYLAXIS
     Route: 048
     Dates: start: 20150421
  14. ZARZIO [Concomitant]
     Active Substance: FILGRASTIM
     Indication: COLONY STIMULATING FACTOR THERAPY
     Route: 042
     Dates: start: 20150715, end: 20150718

REACTIONS (3)
  - Dehydration [Unknown]
  - Gastrointestinal disorder [Unknown]
  - Vomiting [Recovered/Resolved]

NARRATIVE: CASE EVENT DATE: 20150718
